FAERS Safety Report 18744728 (Version 5)
Quarter: 2021Q2

REPORT INFORMATION
  Report Type: Report from Study
  Country: CA (occurrence: CA)
  Receive Date: 20210115
  Receipt Date: 20210509
  Transmission Date: 20210717
  Serious: Yes (Other)
  Sender: FDA-Public Use
  Company Number: CA-B.I. PHARMACEUTICALS,INC./RIDGEFIELD-2021-BI-074277

PATIENT
  Age: 72 Year
  Sex: Male
  Weight: 92.9 kg

DRUGS (2)
  1. OFEV [Suspect]
     Active Substance: NINTEDANIB
     Indication: IDIOPATHIC PULMONARY FIBROSIS
     Dosage: 300MG
     Route: 048
     Dates: start: 20200102, end: 20210408
  2. OFEV [Suspect]
     Active Substance: NINTEDANIB
     Dosage: FOR TWO WEEKS.

REACTIONS (3)
  - Haematochezia [Not Recovered/Not Resolved]
  - Dizziness [Recovered/Resolved]
  - Haematochezia [Unknown]

NARRATIVE: CASE EVENT DATE: 20210102
